FAERS Safety Report 5451849-8 (Version None)
Quarter: 2007Q3

REPORT INFORMATION
  Report Type: 
  Country: None (occurrence: None)
  Receive Date: 20070806
  Receipt Date: 20070521
  Transmission Date: 20080115
  Serious: Yes (Other)
  Sender: FDA-Public Use
  Company Number: 37316

PATIENT
  Age: 64 Year
  Sex: Female

DRUGS (2)
  1. MIDAZOLAM HCL [Suspect]
     Indication: CATHETERISATION CARDIAC
     Dosage: 2 MG IN A SINGLE DOSE
     Dates: start: 20070521
  2. MIDAZOLAM HCL [Suspect]
     Indication: CATHETERISATION CARDIAC
     Dosage: 2 MG IN A

REACTIONS (1)
  - CONVULSION [None]
